FAERS Safety Report 7818274-3 (Version None)
Quarter: 2011Q4

REPORT INFORMATION
  Report Type: 
  Country: None (occurrence: None)
  Receive Date: 20111017
  Receipt Date: 20111012
  Transmission Date: 20120403
  Serious: Yes (Hospitalization, Other)
  Sender: FDA-Public Use
  Company Number: CA-ABBOTT-11P-028-0863604-00

PATIENT
  Sex: Female
  Weight: 52.21 kg

DRUGS (2)
  1. HUMIRA [Suspect]
     Indication: CROHN'S DISEASE
     Route: 058
     Dates: start: 20081010, end: 20110901
  2. HUMIRA [Suspect]
     Dates: start: 20111006

REACTIONS (5)
  - INTESTINAL OBSTRUCTION [None]
  - NASAL DISORDER [None]
  - DEPRESSED MOOD [None]
  - GASTROINTESTINAL STOMA COMPLICATION [None]
  - ABDOMINAL DISTENSION [None]
